FAERS Safety Report 9266254 (Version 1)
Quarter: 2013Q2

REPORT INFORMATION
  Report Type: Spontaneous
  Country: US (occurrence: US)
  Receive Date: 20130502
  Receipt Date: 20130502
  Transmission Date: 20140414
  Serious: No
  Sender: FDA-Public Use
  Company Number: US-009507513-1304USA016649

PATIENT
  Age: 32 Year
  Sex: Female
  Weight: 61.68 kg

DRUGS (2)
  1. IMPLANON [Suspect]
     Indication: CONTRACEPTION
     Dosage: 3 YEARS, LEFT ARM
     Route: 059
     Dates: start: 20110827
  2. SUDAFED [Concomitant]
     Dosage: UNK

REACTIONS (1)
  - Metrorrhagia [Unknown]
